FAERS Safety Report 5865746-7 (Version None)
Quarter: 2008Q3

REPORT INFORMATION
  Report Type: 
  Country: None (occurrence: None)
  Receive Date: 20080829
  Receipt Date: 20080826
  Transmission Date: 20090109
  Serious: Yes (Hospitalization, Other)
  Sender: FDA-Public Use
  Company Number: KR-ASTRAZENECA-2008AP06605

PATIENT
  Age: 75 Year
  Sex: Female

DRUGS (3)
  1. IRESSA [Suspect]
     Route: 048
     Dates: start: 20071013
  2. AZELASTINE HCL [Concomitant]
     Indication: RASH
     Dates: start: 20080424
  3. TRIMEBUTINE [Concomitant]
     Indication: GASTROINTESTINAL MOTILITY DISORDER
     Dates: start: 20080718

REACTIONS (1)
  - SUBDURAL HAEMORRHAGE [None]
